FAERS Safety Report 23326022 (Version 1)
Quarter: 2023Q4

REPORT INFORMATION
  Report Type: Spontaneous
  Country: CA (occurrence: CA)
  Receive Date: 20231221
  Receipt Date: 20231221
  Transmission Date: 20240109
  Serious: Yes (Other)
  Sender: FDA-Public Use
  Company Number: CA-PFIZER INC-202300444848

PATIENT

DRUGS (1)
  1. ABRILADA [Suspect]
     Active Substance: ADALIMUMAB-AFZB
     Indication: Crohn^s disease
     Dosage: 40 MG, EVERY 2 WEEKS
     Route: 064
     Dates: start: 20220525

REACTIONS (2)
  - Maternal exposure during pregnancy [Unknown]
  - Neonatal hypotension [Unknown]

NARRATIVE: CASE EVENT DATE: 20230101
